FAERS Safety Report 8596797-X (Version None)
Quarter: 2012Q3

REPORT INFORMATION
  Report Type: 
  Country: None (occurrence: None)
  Receive Date: 20120815
  Receipt Date: 20120803
  Transmission Date: 20120928
  Serious: No
  Sender: FDA-Public Use
  Company Number: US-B.I. PHARMACEUTICALS,INC./RIDGEFIELD-2012-BP-17519BP

PATIENT
  Sex: Female

DRUGS (2)
  1. MIRAPEX [Suspect]
     Indication: RESTLESS LEGS SYNDROME
     Dosage: 0.75 MG
     Route: 048
     Dates: start: 20120802
  2. ZOLOFT [Concomitant]
     Indication: ANXIETY
     Dosage: 75 MG
     Route: 048
     Dates: start: 20010101

REACTIONS (5)
  - RETCHING [None]
  - DIZZINESS [None]
  - NAUSEA [None]
  - COLD SWEAT [None]
  - FALL [None]
